FAERS Safety Report 18869927 (Version 3)
Quarter: 2025Q3

REPORT INFORMATION
  Report Type: Report from Study
  Country: CA (occurrence: CA)
  Receive Date: 20210210
  Receipt Date: 20250807
  Transmission Date: 20251020
  Serious: Yes (Other)
  Sender: TAKEDA
  Company Number: CA-TAKEDA-2016TUS007899

PATIENT
  Sex: Male

DRUGS (17)
  1. VEDOLIZUMAB [Suspect]
     Active Substance: VEDOLIZUMAB
     Indication: Crohn^s disease
  2. VEDOLIZUMAB [Suspect]
     Active Substance: VEDOLIZUMAB
     Dosage: 300 MILLIGRAM, Q4WEEKS
     Dates: start: 20161024
  3. VEDOLIZUMAB [Suspect]
     Active Substance: VEDOLIZUMAB
  4. VEDOLIZUMAB [Suspect]
     Active Substance: VEDOLIZUMAB
  5. VEDOLIZUMAB [Suspect]
     Active Substance: VEDOLIZUMAB
     Dosage: 300 MILLIGRAM, Q4WEEKS
     Dates: start: 20200102
  6. VEDOLIZUMAB [Suspect]
     Active Substance: VEDOLIZUMAB
     Indication: Crohn^s disease
     Dosage: 108 MILLIGRAM, Q2WEEKS
     Dates: start: 20230227
  7. Statex [Concomitant]
  8. RABEPRAZOLE [Concomitant]
     Active Substance: RABEPRAZOLE
  9. DOCUSATE [Concomitant]
     Active Substance: DOCUSATE
  10. JANUVIA [Concomitant]
     Active Substance: SITAGLIPTIN PHOSPHATE
  11. ADVAIR HFA [Concomitant]
     Active Substance: FLUTICASONE PROPIONATE\SALMETEROL XINAFOATE
  12. INSULIN ASPART [Concomitant]
     Active Substance: INSULIN ASPART
  13. OLMESARTAN MEDOXOMIL [Concomitant]
     Active Substance: OLMESARTAN MEDOXOMIL
  14. LANTUS [Concomitant]
     Active Substance: INSULIN GLARGINE
  15. HYDROMORPHONE [Concomitant]
     Active Substance: HYDROMORPHONE
  16. CANDESARTAN [Concomitant]
     Active Substance: CANDESARTAN
  17. IRON [Concomitant]
     Active Substance: IRON

REACTIONS (3)
  - Crohn^s disease [Unknown]
  - Abdominal abscess [Unknown]
  - Arthralgia [Unknown]
